FAERS Safety Report 12893976 (Version 1)
Quarter: 2016Q4

REPORT INFORMATION
  Report Type: Spontaneous
  Country: HR (occurrence: HR)
  Receive Date: 20161028
  Receipt Date: 20161028
  Transmission Date: 20170207
  Serious: Yes (Other)
  Sender: FDA-Public Use
  Company Number: HR-TEVA-706033ACC

PATIENT
  Sex: Female

DRUGS (3)
  1. CERSON [Suspect]
     Active Substance: NITRAZEPAM
     Dosage: UNKNOWN QUANTITY
     Route: 048
     Dates: start: 201608, end: 201608
  2. BRILIQUE [Suspect]
     Active Substance: TICAGRELOR
     Dosage: UNKNOWN QUANTITY
     Route: 048
     Dates: start: 201608, end: 201608
  3. CARVEDILOL. [Suspect]
     Active Substance: CARVEDILOL
     Dosage: UNKNOWN QUANTITY, UNSPECIFIED FORMULATION
     Route: 048
     Dates: start: 201608, end: 201608

REACTIONS (4)
  - Coma [Unknown]
  - Bradycardia [Unknown]
  - Suicide attempt [Unknown]
  - Loss of consciousness [Unknown]

NARRATIVE: CASE EVENT DATE: 201608
